FAERS Safety Report 8622014-8 (Version None)
Quarter: 2012Q3

REPORT INFORMATION
  Report Type: 
  Country: None (occurrence: None)
  Receive Date: 20120823
  Receipt Date: 20120823
  Transmission Date: 20120928
  Serious: Yes (Hospitalization)
  Sender: FDA-Public Use
  Company Number: None

PATIENT
  Sex: Female
  Weight: 87.6803 kg

DRUGS (3)
  1. CISPLATIN [Suspect]
     Dosage: EVERY 2 WEEKS X 3 CYCLES
     Dates: start: 20120712, end: 20120809
  2. NEULASTA [Suspect]
     Dosage: DAY 2 OF CYCLE X 3
     Dates: start: 20120708, end: 20120811
  3. GEMCITABINE HYDROCHLORIDE [Suspect]
     Dosage: EVERY 2 WEEKS X 3 CYCLES
     Dates: start: 20120712, end: 20120809

REACTIONS (3)
  - CHEST PAIN [None]
  - ANXIETY [None]
  - STRESS [None]
